FAERS Safety Report 8934859 (Version 2)
Quarter: 2013Q1

REPORT INFORMATION
  Report Type: Report from Study
  Country: US (occurrence: US)
  Receive Date: 20121129
  Receipt Date: 20130110
  Transmission Date: 20140127
  Serious: Yes (Other)
  Sender: FDA-Public Use
  Company Number: US-ASTELLAS-2012US011478

PATIENT
  Age: 54 Year
  Sex: Male

DRUGS (1)
  1. ERLOTINIB TABLET [Suspect]
     Indication: HEPATIC NEOPLASM
     Dosage: 100 MG, UID/QD
     Route: 048
     Dates: start: 20121025

REACTIONS (6)
  - Off label use [Unknown]
  - Drug ineffective [Unknown]
  - Blood count abnormal [Unknown]
  - Nausea [Unknown]
  - Vomiting [Unknown]
  - Diarrhoea [Unknown]
